FAERS Safety Report 5165496-9 (Version None)
Quarter: 2006Q4

REPORT INFORMATION
  Report Type: 
  Country: None (occurrence: None)
  Receive Date: 20061128
  Receipt Date: 20061114
  Transmission Date: 20070319
  Serious: No
  Sender: FDA-Public Use
  Company Number: 2006-150637-NL

PATIENT
  Age: 68 Year
  Sex: Male

DRUGS (7)
  1. MIRTAZAPINE [Suspect]
     Indication: DEPRESSION
     Dosage: 15 MG ORAL
     Route: 048
     Dates: start: 20060713, end: 20060714
  2. ACETYLSALICYLIC ACID SRT [Concomitant]
  3. DOXAZOSIN MESYLATE [Concomitant]
  4. FUROSEMIDE [Concomitant]
  5. LOSARTAN POTASSIUM [Concomitant]
  6. MOXONIDINE [Concomitant]
  7. DILTIAZEM HYDROCHLORIDE [Concomitant]

REACTIONS (1)
  - RAYNAUD'S PHENOMENON [None]
